FAERS Safety Report 13182070 (Version 1)
Quarter: 2017Q1

REPORT INFORMATION
  Report Type: Spontaneous
  Country: US (occurrence: US)
  Receive Date: 20170202
  Receipt Date: 20170202
  Transmission Date: 20170428
  Serious: Yes (Life-Threatening, Other)
  Sender: FDA-Public Use
  Company Number: None

PATIENT
  Age: 21 Year
  Sex: Female
  Weight: 63 kg

DRUGS (2)
  1. DULOXETINE. [Suspect]
     Active Substance: DULOXETINE
     Indication: DEPRESSION
     Dosage: ?          QUANTITY:1 CAPSULE(S);?
     Route: 048
     Dates: start: 20161001, end: 20170129
  2. DULOXETINE. [Suspect]
     Active Substance: DULOXETINE
     Indication: ANXIETY
     Dosage: ?          QUANTITY:1 CAPSULE(S);?
     Route: 048
     Dates: start: 20161001, end: 20170129

REACTIONS (9)
  - Activities of daily living impaired [None]
  - Suicidal ideation [None]
  - Paranoia [None]
  - Product substitution issue [None]
  - Hyperhidrosis [None]
  - Impaired work ability [None]
  - Feeling abnormal [None]
  - Mood swings [None]
  - Tremor [None]

NARRATIVE: CASE EVENT DATE: 20170131
